FAERS Safety Report 20501443 (Version 9)
Quarter: 2023Q4

REPORT INFORMATION
  Report Type: Spontaneous
  Country: CA (occurrence: CA)
  Receive Date: 20220222
  Receipt Date: 20231024
  Transmission Date: 20240110
  Serious: Yes (Other)
  Sender: FDA-Public Use
  Company Number: CA-PFIZER INC-202101374904

PATIENT
  Age: 77 Year
  Sex: Female
  Weight: 56 kg

DRUGS (11)
  1. RUXIENCE [Suspect]
     Active Substance: RITUXIMAB-PVVR
     Indication: Granulomatosis with polyangiitis
     Dosage: 1 G, EVERY 6 MONTHS (RITUXAN SWITCH)
     Route: 042
     Dates: start: 20211028, end: 20220606
  2. RUXIENCE [Suspect]
     Active Substance: RITUXIMAB-PVVR
     Dosage: 500 MG, EVERY 4 MONTH (DAY 1 ONLY)
     Route: 042
     Dates: start: 20221104, end: 20221104
  3. RUXIENCE [Suspect]
     Active Substance: RITUXIMAB-PVVR
     Dosage: 500 MG, EVERY 4 MONTH (DAY 1 ONLY)
     Route: 042
     Dates: start: 20230302, end: 20230302
  4. RUXIENCE [Suspect]
     Active Substance: RITUXIMAB-PVVR
     Dosage: 500 MG, EVERY 4 MONTH
     Route: 042
     Dates: start: 20230628, end: 20230628
  5. RUXIENCE [Suspect]
     Active Substance: RITUXIMAB-PVVR
     Dosage: 500 MG, EVERY 4 MONTH
     Route: 042
     Dates: start: 20231018, end: 20231018
  6. ACETAMINOPHEN [Concomitant]
     Active Substance: ACETAMINOPHEN
     Indication: Premedication
     Dosage: 650 MG
     Dates: start: 20231018, end: 20231018
  7. BENADRYL [Concomitant]
     Active Substance: DIPHENHYDRAMINE HYDROCHLORIDE
     Indication: Premedication
     Dosage: 50 MG
     Dates: start: 20231018, end: 20231018
  8. CALCIUM [Concomitant]
     Active Substance: CALCIUM
     Dosage: 1 DF
  9. METHYLPREDNISOLONE [Concomitant]
     Active Substance: METHYLPREDNISOLONE
     Indication: Premedication
     Dosage: 100 MG
     Dates: start: 20231018, end: 20231018
  10. PREDNISONE [Concomitant]
     Active Substance: PREDNISONE
     Dosage: UNK
  11. CHOLECALCIFEROL [Concomitant]
     Active Substance: CHOLECALCIFEROL
     Dosage: 1 DF

REACTIONS (11)
  - Pelvic fracture [Recovering/Resolving]
  - Foot fracture [Not Recovered/Not Resolved]
  - Fall [Unknown]
  - Gait inability [Recovering/Resolving]
  - Pneumonia [Recovered/Resolved]
  - Blood pressure diastolic decreased [Unknown]
  - Fatigue [Not Recovered/Not Resolved]
  - Off label use [Unknown]
  - Off label use [Unknown]
  - Intentional product use issue [Unknown]
  - Incorrect product administration duration [Unknown]

NARRATIVE: CASE EVENT DATE: 20220131
